FAERS Safety Report 7472395-6 (Version None)
Quarter: 2011Q2

REPORT INFORMATION
  Report Type: 
  Country: None (occurrence: None)
  Receive Date: 20110511
  Receipt Date: 20110503
  Transmission Date: 20111010
  Serious: Yes (Other)
  Sender: FDA-Public Use
  Company Number: PHHY2011US38525

PATIENT
  Age: 57 Year
  Sex: Female
  Weight: 91 kg

DRUGS (7)
  1. GABAPENTIN [Concomitant]
     Indication: PAIN
     Dosage: 900 MG, QD
     Route: 048
     Dates: start: 20000116
  2. ASPIRIN [Concomitant]
     Dosage: 81 MG, QD
     Dates: start: 20090122
  3. AMBIEN [Concomitant]
     Indication: INSOMNIA
     Dosage: 10 MG, QD
     Route: 048
     Dates: start: 20090116
  4. ESTRACE [Concomitant]
     Indication: BLADDER DISORDER
     Dosage: 0.1 MG, QD
     Route: 067
     Dates: start: 20070907
  5. GILENYA [Suspect]
     Indication: MULTIPLE SCLEROSIS
     Dosage: 0.5 MG, QD
     Route: 048
     Dates: start: 20090208
  6. AMITRIPTYLINE HCL [Concomitant]
     Indication: INSOMNIA
     Dosage: 25 MG, QD
     Route: 048
     Dates: start: 20000101
  7. BACLOFEN [Concomitant]
     Indication: MUSCLE SPASMS
     Dosage: 0.05 MG, QD
     Route: 037
     Dates: start: 20100705

REACTIONS (1)
  - DEAFNESS UNILATERAL [None]
